FAERS Safety Report 9272987 (Version 1)
Quarter: 2013Q2

REPORT INFORMATION
  Report Type: Spontaneous
  Country: US (occurrence: US)
  Receive Date: 20130506
  Receipt Date: 20130506
  Transmission Date: 20140414
  Serious: Yes (Hospitalization)
  Sender: FDA-Public Use
  Company Number: US-ASTRAZENECA-2013SE30183

PATIENT
  Sex: Female

DRUGS (5)
  1. ATENOLOL [Suspect]
  2. ATACAND [Suspect]
     Indication: BLOOD PRESSURE ABNORMAL
     Route: 048
     Dates: start: 2006
  3. ATACAND [Suspect]
     Indication: BLOOD PRESSURE ABNORMAL
     Route: 048
  4. LISINOPRIL [Suspect]
     Route: 048
  5. BLOOD PRESSURE MEDICATION [Suspect]

REACTIONS (4)
  - Atrial fibrillation [Unknown]
  - Cough [Unknown]
  - Pruritus [Unknown]
  - Intentional drug misuse [Unknown]
